FAERS Safety Report 6274035-0 (Version None)
Quarter: 2009Q3

REPORT INFORMATION
  Report Type: 
  Country: None (occurrence: None)
  Receive Date: 20090720
  Receipt Date: 20090708
  Transmission Date: 20100115
  Serious: Yes (Hospitalization)
  Sender: FDA-Public Use
  Company Number: US-ELI_LILLY_AND_COMPANY-US200610001528

PATIENT
  Sex: Male
  Weight: 90.702 kg

DRUGS (13)
  1. ZYPREXA [Suspect]
     Indication: BIPOLAR DISORDER
     Dosage: 5 MG, UNK
     Route: 048
     Dates: start: 19980801, end: 20011011
  2. ZYPREXA [Suspect]
     Dosage: 10 MG, UNK
     Route: 048
     Dates: start: 20011011, end: 20050908
  3. ZYPREXA [Suspect]
     Route: 048
     Dates: start: 20050901, end: 20051001
  4. ZYPREXA [Suspect]
     Route: 048
     Dates: start: 20051001
  5. ZYPREXA [Suspect]
     Dosage: 15 MG, UNK
     Dates: start: 20060106
  6. ZYPREXA [Suspect]
     Dosage: 20 MG, UNK
     Dates: start: 20060705
  7. ZYPREXA [Suspect]
     Dosage: 15 MG, UNK
     Dates: start: 20060804
  8. LUVOX [Concomitant]
     Dosage: 100 MG, UNK
  9. AEROBID [Concomitant]
     Dosage: 7 G, UNK
  10. RISPERDAL [Concomitant]
     Dosage: 2 MG, UNK
  11. DEPAKOTE [Concomitant]
     Dosage: 500 MG, UNK
  12. ZOLOFT [Concomitant]
     Dosage: 100 MG, UNK
  13. SEROQUEL [Concomitant]
     Dosage: 300 MG, UNK

REACTIONS (3)
  - AMPUTATION [None]
  - DIABETES MELLITUS [None]
  - DIABETIC COMA [None]
